FAERS Safety Report 25575815 (Version 2)
Quarter: 2025Q3

REPORT INFORMATION
  Report Type: Spontaneous
  Country: CN (occurrence: CN)
  Receive Date: 20250718
  Receipt Date: 20250723
  Transmission Date: 20251020
  Serious: Yes (Death)
  Sender: ROCHE
  Company Number: CN-ROCHE-10000340422

PATIENT
  Age: 60 Year
  Sex: Male

DRUGS (6)
  1. ENTRECTINIB [Suspect]
     Active Substance: ENTRECTINIB
     Indication: Squamous cell carcinoma of lung
     Dosage: WHICH WAS ADJUSTED TO 400 MG/D AFTER 3 DAYS, FOR A TOTAL OF 9 DAYS
     Route: 065
  2. PIPERACILLIN [Concomitant]
     Active Substance: PIPERACILLIN
  3. SILDENAFIL CITRATE [Concomitant]
     Active Substance: SILDENAFIL CITRATE
  4. AMBROXOL [Concomitant]
     Active Substance: AMBROXOL
  5. METOPROLOL [Concomitant]
     Active Substance: METOPROLOL
  6. METHYLCOBALAMIN [Concomitant]
     Active Substance: METHYLCOBALAMIN

REACTIONS (2)
  - Acute hepatic failure [Fatal]
  - Hepatic encephalopathy [Fatal]

NARRATIVE: CASE EVENT DATE: 20240201
